FAERS Safety Report 5502170-0 (Version None)
Quarter: 2007Q4

REPORT INFORMATION
  Report Type: 
  Country: None (occurrence: None)
  Receive Date: 20071030
  Receipt Date: 20071017
  Transmission Date: 20080405
  Serious: Yes (Other)
  Sender: FDA-Public Use
  Company Number: PT-ASTRAZENECA-2007SE05576

PATIENT
  Sex: Female

DRUGS (1)
  1. BLOPRESS [Suspect]
     Route: 048
     Dates: start: 20051001, end: 20070913

REACTIONS (2)
  - ARTHRALGIA [None]
  - EYELID OEDEMA [None]
